FAERS Safety Report 14649675 (Version 3)
Quarter: 2019Q3

REPORT INFORMATION
  Report Type: Report from Study
  Country: IT (occurrence: IT)
  Receive Date: 20180316
  Receipt Date: 20190814
  Transmission Date: 20191004
  Serious: Yes (Life-Threatening, Hospitalization, Other)
  Sender: FDA-Public Use
  Company Number: IT-PFIZER INC-2018103724

PATIENT
  Age: 13 Year
  Sex: Male
  Weight: 44 kg

DRUGS (30)
  1. ENAPREN [Concomitant]
     Active Substance: ENALAPRIL MALEATE
     Dosage: UNK
     Route: 065
     Dates: start: 20170205
  2. ETOPOSIDE. [Concomitant]
     Active Substance: ETOPOSIDE
     Dosage: 154 MG, 2X/DAYBID (EV ROUTE)
     Route: 050
     Dates: start: 20161212, end: 20161214
  3. VINCRISTINE SULFATE. [Suspect]
     Active Substance: VINCRISTINE SULFATE
     Indication: CHEMOTHERAPY
     Dosage: 2 MG, QD
     Route: 050
     Dates: start: 20161016, end: 20161016
  4. GLIVEC [Suspect]
     Active Substance: IMATINIB MESYLATE
     Dosage: 441 MG, QD
     Route: 048
     Dates: start: 20170102
  5. KCL-RETARD [Concomitant]
     Active Substance: POTASSIUM CHLORIDE
     Dosage: 4 DF, QD
     Route: 065
  6. METHOTREXATE. [Concomitant]
     Active Substance: METHOTREXATE
     Dosage: 12 MG, QD
     Route: 037
     Dates: start: 20161011, end: 20161011
  7. METHOTREXATE. [Concomitant]
     Active Substance: METHOTREXATE
     Dosage: UNK
     Route: 065
     Dates: start: 20161108
  8. ANTRA /00661201/ [Concomitant]
     Active Substance: OMEPRAZOLE
     Dosage: 40 MG, UNK
     Route: 042
  9. METHYLPREDNISOLONE. [Concomitant]
     Active Substance: METHYLPREDNISOLONE
     Dosage: 10 MG, QD
     Route: 037
     Dates: start: 20161214, end: 20161214
  10. ADRIBLASTINA [Suspect]
     Active Substance: DOXORUBICIN HYDROCHLORIDE
     Indication: ACUTE LYMPHOCYTIC LEUKAEMIA
     Dosage: 44.1 MG, CYCLIC
     Route: 042
     Dates: end: 20170220
  11. GLIVEC [Suspect]
     Active Substance: IMATINIB MESYLATE
     Indication: ACUTE LYMPHOCYTIC LEUKAEMIA
     Dosage: 300 OT, UNK
     Route: 048
     Dates: start: 20160721
  12. GLIVEC [Suspect]
     Active Substance: IMATINIB MESYLATE
     Indication: PHILADELPHIA CHROMOSOME POSITIVE
     Dosage: 500 MG ALTERNATED WITH 400 MG DAILY
     Route: 048
  13. VINCRISTINE SULFATE. [Suspect]
     Active Substance: VINCRISTINE SULFATE
     Indication: ACUTE LYMPHOCYTIC LEUKAEMIA
     Dosage: 2 MG, CYCLIC
     Route: 042
     Dates: start: 20170102, end: 20170223
  14. GLIVEC [Suspect]
     Active Substance: IMATINIB MESYLATE
     Dosage: UNK
     Route: 048
     Dates: end: 20161219
  15. L-ASPARAGINASE [Suspect]
     Active Substance: ASPARAGINASE
     Indication: ACUTE LYMPHOCYTIC LEUKAEMIA
     Dosage: 29400 IU, UNK
     Route: 042
     Dates: end: 20170130
  16. CITARABINA [Concomitant]
     Active Substance: CYTARABINE
     Dosage: 3080 MG, 2X/DAYBID (EV ROUTE)
     Route: 050
     Dates: start: 20161210, end: 20161214
  17. VINCRISTINE SULFATE. [Suspect]
     Active Substance: VINCRISTINE SULFATE
     Dosage: 2 MG, QD (EV ROUTE)
     Route: 050
     Dates: start: 20161011, end: 20161011
  18. VINCRISTINE SULFATE. [Suspect]
     Active Substance: VINCRISTINE SULFATE
     Dosage: 2 MG, (EV ROUTE)
     Route: 050
     Dates: start: 20170619, end: 20170619
  19. PEGASPARGASE [Concomitant]
     Active Substance: PEGASPARGASE
     Dosage: 1540 UL, QD (EV ROUTE)
     Route: 050
     Dates: start: 20161016, end: 20161016
  20. CITARABINA [Concomitant]
     Active Substance: CYTARABINE
     Dosage: 30 MG, QD
     Route: 037
     Dates: start: 20161011, end: 20161011
  21. CYCLOPHOSPHAMIDE. [Concomitant]
     Active Substance: CYCLOPHOSPHAMIDE
     Dosage: 308 MG, QD (EV ROUTE)
     Route: 050
     Dates: start: 20161012, end: 20161014
  22. DEXAMETHASONE SODIUM PHOSPHATE. [Suspect]
     Active Substance: DEXAMETHASONE SODIUM PHOSPHATE
     Dosage: 13.8 MG, UNK
     Route: 048
     Dates: start: 20170605, end: 20170629
  23. ERWINIASE [Concomitant]
     Active Substance: ASPARAGINASE
     Dosage: 30000 UL, QD (EV ROUTE)
     Route: 050
     Dates: start: 20161215, end: 20161227
  24. BACTRIM [Concomitant]
     Active Substance: SULFAMETHOXAZOLE\TRIMETHOPRIM
     Dosage: 1X2 TABLET/DAY
     Route: 065
  25. DEXAMETHASONE SODIUM PHOSPHATE. [Suspect]
     Active Substance: DEXAMETHASONE SODIUM PHOSPHATE
     Indication: CHEMOTHERAPY
     Dosage: 30 MG, QD (EV ROUTE)
     Route: 050
     Dates: start: 20161011, end: 20161015
  26. CEFTAZIDIME. [Concomitant]
     Active Substance: CEFTAZIDIME
     Dosage: 1800 MG, 3X/DAY TID (EV ROUTE)
     Route: 042
     Dates: start: 20170702, end: 20170708
  27. METHOTREXATE. [Concomitant]
     Active Substance: METHOTREXATE
     Dosage: 7700 MG, QD (EV ROUTE)
     Route: 065
     Dates: start: 20161011, end: 20161011
  28. CITARABINA [Concomitant]
     Active Substance: CYTARABINE
     Dosage: 3080 MG, BID (EV ROUTE)
     Route: 050
     Dates: start: 20161015, end: 20161015
  29. ADRIBLASTINA [Suspect]
     Active Substance: DOXORUBICIN HYDROCHLORIDE
     Indication: CHEMOTHERAPY
     Dosage: 34.5 MG, (EV ROUTE)
     Route: 050
     Dates: start: 20170619, end: 20170619
  30. DECADRON [Concomitant]
     Active Substance: DEXAMETHASONE
     Dosage: UNK
     Route: 065

REACTIONS (23)
  - Cough [Recovering/Resolving]
  - Metabolic disorder [Unknown]
  - Platelet count decreased [Unknown]
  - Pneumonia [Recovered/Resolved]
  - Neutropenia [Recovered/Resolved]
  - Bone marrow failure [Recovered/Resolved]
  - Lipase increased [Recovered/Resolved]
  - Drug level increased [Unknown]
  - Pneumonia [Recovered/Resolved]
  - Arthralgia [Not Recovered/Not Resolved]
  - Sinus tachycardia [Recovered/Resolved]
  - Bone marrow failure [Recovered/Resolved]
  - Herpes virus infection [Unknown]
  - Hyponatraemia [Recovered/Resolved]
  - Pulmonary mass [Unknown]
  - Cytogenetic analysis abnormal [Not Recovered/Not Resolved]
  - Lung infection [Recovered/Resolved]
  - Pneumonia [Recovered/Resolved]
  - Neutropenia [Not Recovered/Not Resolved]
  - Neutropenia [Recovered/Resolved]
  - Pyrexia [Unknown]
  - Catarrh [Recovering/Resolving]
  - Bronchitis [Unknown]

NARRATIVE: CASE EVENT DATE: 20161018
